FAERS Safety Report 7449940-X (Version None)
Quarter: 2011Q2

REPORT INFORMATION
  Report Type: 
  Country: None (occurrence: None)
  Receive Date: 20110427
  Receipt Date: 20110427
  Transmission Date: 20111010
  Serious: Yes (Hospitalization)
  Sender: FDA-Public Use
  Company Number: None

PATIENT
  Age: 59 Year
  Sex: Female
  Weight: 113.3993 kg

DRUGS (2)
  1. FLEBOGAMMA [Suspect]
     Dates: start: 20110426
  2. FLEBOGAMMA [Suspect]
     Indication: IMMUNODEFICIENCY
     Dosage: 35GM MONTHLY IV
     Route: 042
     Dates: start: 20110426

REACTIONS (4)
  - HEADACHE [None]
  - CHILLS [None]
  - BACK PAIN [None]
  - HYPOAESTHESIA [None]
